FAERS Safety Report 7371146-3 (Version None)
Quarter: 2011Q1

REPORT INFORMATION
  Report Type: 
  Country: None (occurrence: None)
  Receive Date: 20110324
  Receipt Date: 20100914
  Transmission Date: 20110831
  Serious: Yes (Other)
  Sender: FDA-Public Use
  Company Number: US-BAYER-201021491NA

PATIENT
  Sex: Female
  Weight: 61.224 kg

DRUGS (5)
  1. MOTRIN [Concomitant]
     Dosage: UNK UNK, PRN
  2. UNCODEABLE ^UNCLASSIFIABLE^ [Concomitant]
     Dosage: UNK UNK, PRN
  3. UNCODEABLE ^UNCLASSIFIABLE^ [Concomitant]
     Indication: MULTIPLE ALLERGIES
     Dosage: UNK UNK, PRN
  4. ADVIL LIQUI-GELS [Concomitant]
     Dosage: UNK UNK, PRN
  5. YAZ [Suspect]
     Indication: CONTRACEPTION
     Dosage: UNK
     Route: 048
     Dates: start: 20090120, end: 20090908

REACTIONS (6)
  - CHOLECYSTITIS [None]
  - ANXIETY [None]
  - GALLBLADDER DISORDER [None]
  - CHOLELITHIASIS [None]
  - BILIARY COLIC [None]
  - PAIN [None]
